FAERS Safety Report 8141715-1 (Version None)
Quarter: 2012Q1

REPORT INFORMATION
  Report Type: 
  Country: None (occurrence: None)
  Receive Date: 20120216
  Receipt Date: 20120213
  Transmission Date: 20120608
  Serious: Yes (Other)
  Sender: FDA-Public Use
  Company Number: CA-JNJFOC-20120100217

PATIENT
  Age: 56 Year
  Sex: Female
  Weight: 63.05 kg

DRUGS (9)
  1. CIPRALEX [Concomitant]
     Indication: MUSCLE RELAXANT THERAPY
     Route: 065
  2. EVISTA [Concomitant]
     Indication: PRODUCT USED FOR UNKNOWN INDICATION
     Route: 065
  3. ZOPICLONE [Concomitant]
     Indication: PRODUCT USED FOR UNKNOWN INDICATION
     Route: 065
  4. NICOTINE [Suspect]
     Indication: SMOKING CESSATION THERAPY
     Dosage: BY THE END, 24 LOZENGES A DAY; 7-8 MONTHS OF USE
     Route: 048
     Dates: start: 20110101, end: 20111212
  5. PRAVASTATIN [Concomitant]
     Indication: BLOOD CHOLESTEROL
     Route: 065
  6. DARVON [Concomitant]
     Indication: PAIN
     Route: 065
  7. CALCIUM AND VITAMIN D [Concomitant]
     Indication: PRODUCT USED FOR UNKNOWN INDICATION
     Route: 065
  8. BROMAZEPAM [Concomitant]
     Indication: PRODUCT USED FOR UNKNOWN INDICATION
     Route: 065
  9. CELEBREX [Concomitant]
     Indication: PRODUCT USED FOR UNKNOWN INDICATION
     Route: 065

REACTIONS (2)
  - DEPENDENCE [None]
  - ADVERSE EVENT [None]
